FAERS Safety Report 5800398-3 (Version None)
Quarter: 2008Q3

REPORT INFORMATION
  Report Type: 
  Country: None (occurrence: None)
  Receive Date: 20080703
  Receipt Date: 20080626
  Transmission Date: 20090109
  Serious: Yes (Hospitalization, Other)
  Sender: FDA-Public Use
  Company Number: US-MERCK-0605USA03393

PATIENT
  Age: 64 Year
  Sex: Female

DRUGS (5)
  1. FOSAMAX [Suspect]
     Indication: OSTEOPOROSIS
     Route: 048
     Dates: end: 20060101
  2. FOSAMAX [Suspect]
     Route: 048
     Dates: start: 20011201, end: 20020318
  3. FOSAMAX [Suspect]
     Indication: OSTEOPENIA
     Route: 048
     Dates: end: 20060101
  4. FOSAMAX [Suspect]
     Route: 048
     Dates: start: 20011201, end: 20020318
  5. [THERAPY UNSPECIFIED] [Concomitant]
     Indication: PAIN
     Route: 065

REACTIONS (21)
  - AFFERENT LOOP SYNDROME [None]
  - ANAEMIA OF CHRONIC DISEASE [None]
  - ANKLE FRACTURE [None]
  - ANXIETY [None]
  - BLOOD DISORDER [None]
  - DEPRESSION [None]
  - DRUG DEPENDENCE [None]
  - DYSPHAGIA [None]
  - IMPAIRED HEALING [None]
  - LOWER LIMB FRACTURE [None]
  - MALNUTRITION [None]
  - OBSTRUCTION GASTRIC [None]
  - ORAL INFECTION [None]
  - OSTEONECROSIS [None]
  - PANIC ATTACK [None]
  - PULPITIS DENTAL [None]
  - PYREXIA [None]
  - TEMPOROMANDIBULAR JOINT SYNDROME [None]
  - TONGUE ULCERATION [None]
  - TOOTH EROSION [None]
  - WEIGHT DECREASED [None]
